FAERS Safety Report 7706078-1 (Version None)
Quarter: 2011Q3

REPORT INFORMATION
  Report Type: 
  Country: None (occurrence: None)
  Receive Date: 20110824
  Receipt Date: 20110819
  Transmission Date: 20111222
  Serious: Yes (Other)
  Sender: FDA-Public Use
  Company Number: PHHY2011BR37347

PATIENT
  Sex: Female

DRUGS (3)
  1. DICLOFENAC SODIUM [Suspect]
     Dosage: UNK UKN, UNK
  2. VOLTAREN [Suspect]
     Dosage: 50 MG
     Route: 054
  3. VOLTAREN [Suspect]
     Dosage: UNK UKN, UNK

REACTIONS (8)
  - BONE PAIN [None]
  - MUSCULOSKELETAL CHEST PAIN [None]
  - PAIN [None]
  - PAIN IN EXTREMITY [None]
  - GAIT DISTURBANCE [None]
  - DRUG INEFFECTIVE [None]
  - INTERVERTEBRAL DISC PROTRUSION [None]
  - RIB FRACTURE [None]
